FAERS Safety Report 9088169 (Version 5)
Quarter: 2014Q1

REPORT INFORMATION
  Report Type: Spontaneous
  Country: US (occurrence: US)
  Receive Date: 20130201
  Receipt Date: 20140131
  Transmission Date: 20141002
  Serious: Yes (Hospitalization, Other)
  Sender: FDA-Public Use
  Company Number: US-009507513-1301USA014649

PATIENT
  Sex: Female
  Weight: 63.39 kg

DRUGS (1)
  1. FOSAMAX [Suspect]
     Indication: OSTEOPOROSIS
     Dosage: 70 MG, QW
     Route: 048
     Dates: start: 2000

REACTIONS (48)
  - Femur fracture [Unknown]
  - Hip arthroplasty [Unknown]
  - Humerus fracture [Unknown]
  - Cholelithiasis [Unknown]
  - Anaemia [Recovering/Resolving]
  - Open reduction of fracture [Unknown]
  - Peripheral nerve decompression [Unknown]
  - Cholecystitis [Unknown]
  - Carpal tunnel decompression [Unknown]
  - Spinal compression fracture [Unknown]
  - Cholecystectomy [Unknown]
  - Gait disturbance [Unknown]
  - Fracture [Unknown]
  - Foot fracture [Unknown]
  - Hand fracture [Unknown]
  - Low turnover osteopathy [Unknown]
  - Hypertension [Unknown]
  - Chronic obstructive pulmonary disease [Not Recovered/Not Resolved]
  - Osteoarthritis [Unknown]
  - Cardiac murmur [Unknown]
  - Anxiety disorder [Unknown]
  - Depression [Unknown]
  - Grief reaction [Unknown]
  - Tremor [Unknown]
  - Seborrhoeic keratosis [Unknown]
  - Drug dependence [Unknown]
  - Pain [Not Recovered/Not Resolved]
  - Hiatus hernia [Unknown]
  - Malnutrition [Unknown]
  - Barrett^s oesophagus [Unknown]
  - Emphysema [Unknown]
  - Hand fracture [Unknown]
  - Wrist fracture [Unknown]
  - Cataract operation [Unknown]
  - Cataract operation [Unknown]
  - Elbow operation [Unknown]
  - Leukocytosis [Recovering/Resolving]
  - Hypokalaemia [Unknown]
  - Blood cholesterol increased [Unknown]
  - Blood potassium increased [Unknown]
  - Insomnia [Unknown]
  - Abdominal pain [Recovering/Resolving]
  - Pain in extremity [Unknown]
  - Back pain [Unknown]
  - Nausea [Unknown]
  - Abdominal pain [Unknown]
  - Oesophageal stenosis [Unknown]
  - Gastrooesophageal reflux disease [Unknown]
